FAERS Safety Report 17389862 (Version 1)
Quarter: 2020Q1

REPORT INFORMATION
  Report Type: Spontaneous
  Country: US (occurrence: US)
  Receive Date: 20200123
  Receipt Date: 20200123
  Transmission Date: 20200409
  Serious: Yes (Death)
  Sender: FDA-Public Use
  Company Number: None

PATIENT
  Age: 44 Year
  Sex: Female

DRUGS (1)
  1. OPSUMIT [Suspect]
     Active Substance: MACITENTAN
     Indication: PULMONARY ARTERIAL HYPERTENSION
     Route: 048
     Dates: start: 20170209, end: 20200113

REACTIONS (6)
  - Dyspnoea [None]
  - Polyuria [None]
  - Renal impairment [None]
  - Cardiac arrest [None]
  - Cardiac failure [None]
  - Pulseless electrical activity [None]

NARRATIVE: CASE EVENT DATE: 20200113
